FAERS Safety Report 10687787 (Version 3)
Quarter: 2015Q2

REPORT INFORMATION
  Report Type: Spontaneous
  Country: US (occurrence: US)
  Receive Date: 20150102
  Receipt Date: 20150611
  Transmission Date: 20150821
  Serious: Yes (Hospitalization)
  Sender: FDA-Public Use
  Company Number: US-BAYER-2014-191324

PATIENT
  Age: 36 Year
  Sex: Female
  Weight: 68.27 kg

DRUGS (1)
  1. MIRENA [Suspect]
     Active Substance: LEVONORGESTREL
     Dosage: 20 MCG/24HR, CONT
     Route: 015
     Dates: start: 20071005, end: 20120917

REACTIONS (8)
  - Abdominal pain lower [None]
  - Embedded device [None]
  - Off label use of device [None]
  - Injury [None]
  - Pain [None]
  - Device issue [None]
  - Medical device pain [None]
  - Device difficult to use [None]

NARRATIVE: CASE EVENT DATE: 2012
